FAERS Safety Report 7296129-3 (Version None)
Quarter: 2011Q1

REPORT INFORMATION
  Report Type: 
  Country: None (occurrence: None)
  Receive Date: 20110216
  Receipt Date: 20110207
  Transmission Date: 20110831
  Serious: Yes (Hospitalization)
  Sender: FDA-Public Use
  Company Number: US-JNJFOC-20110203244

PATIENT
  Sex: Female
  Weight: 72.58 kg

DRUGS (3)
  1. SIMPONI [Suspect]
     Indication: RHEUMATOID ARTHRITIS
     Route: 058
  2. HYDROCODONE [Concomitant]
     Indication: PAIN
     Dosage: 5-500 MG AS NEEDED
     Route: 048
  3. ARAVA [Concomitant]
     Indication: ARTHRITIS
     Route: 048

REACTIONS (3)
  - DRUG DOSE OMISSION [None]
  - HIP ARTHROPLASTY [None]
  - DEVICE MALFUNCTION [None]
